FAERS Safety Report 9475868 (Version 5)
Quarter: 2015Q4

REPORT INFORMATION
  Report Type: Report from Study
  Country: US (occurrence: US)
  Receive Date: 20130826
  Receipt Date: 20151106
  Transmission Date: 20160305
  Serious: Yes (Hospitalization, Other)
  Sender: FDA-Public Use
  Company Number: US-BIOGENIDEC-2013BI077405

PATIENT
  Sex: Male

DRUGS (1)
  1. AVONEX [Suspect]
     Active Substance: INTERFERON BETA-1A
     Indication: MULTIPLE SCLEROSIS
     Route: 030
     Dates: start: 19961101

REACTIONS (11)
  - Decubitus ulcer [Recovered/Resolved]
  - Infection [Not Recovered/Not Resolved]
  - Skin lesion [Recovered/Resolved]
  - Osteomyelitis [Recovered/Resolved]
  - Staphylococcal infection [Recovered/Resolved]
  - Urinary tract infection [Recovered/Resolved]
  - Pain [Recovered/Resolved]
  - Abasia [Not Recovered/Not Resolved]
  - Gait disturbance [Not Recovered/Not Resolved]
  - Colostomy [Recovered/Resolved]
  - Urinary retention [Not Recovered/Not Resolved]

NARRATIVE: CASE EVENT DATE: 2008
